FAERS Safety Report 24424407 (Version 1)
Quarter: 2024Q4

REPORT INFORMATION
  Report Type: Other
  Country: RU (occurrence: RU)
  Receive Date: 20241010
  Receipt Date: 20241010
  Transmission Date: 20250114
  Serious: Yes (Other)
  Sender: EMD SERONO INC
  Company Number: RU-Merck Healthcare KGaA-2024052237

PATIENT
  Sex: Female

DRUGS (2)
  1. GONADORELIN [Suspect]
     Active Substance: GONADORELIN
     Indication: Controlled ovarian stimulation
     Route: 058
  2. PROGESTERONE [Suspect]
     Active Substance: PROGESTERONE
     Indication: Ovulation induction

REACTIONS (1)
  - Abortion spontaneous [Recovered/Resolved]
